FAERS Safety Report 4335063-5 (Version None)
Quarter: 2004Q2

REPORT INFORMATION
  Report Type: 
  Country: None (occurrence: None)
  Receive Date: 20040408
  Receipt Date: 20040402
  Transmission Date: 20050107
  Serious: Yes (Hospitalization)
  Sender: FDA-Public Use
  Company Number: FR-GLAXOSMITHKLINE-B0328832A

PATIENT
  Age: 78 Year
  Sex: Male
  Weight: 50 kg

DRUGS (4)
  1. AMOXICILLIN [Suspect]
     Dosage: 12G PER DAY
     Route: 030
     Dates: start: 20040228, end: 20040305
  2. ZOVIRAX [Suspect]
     Dosage: 1.5G PER DAY
     Route: 042
     Dates: start: 20040302, end: 20040308
  3. PRIMPERAN INJ [Concomitant]
     Dosage: 1UNIT PER DAY
     Route: 042
     Dates: start: 20040304, end: 20040304
  4. FRAXIPARINE [Concomitant]
     Dosage: .4ML PER DAY
     Route: 058
     Dates: start: 20040301, end: 20040305

REACTIONS (7)
  - BLOOD CREATININE INCREASED [None]
  - COMA [None]
  - CONFUSIONAL STATE [None]
  - CRYSTALLURIA [None]
  - DEPRESSED LEVEL OF CONSCIOUSNESS [None]
  - ENCEPHALOPATHY [None]
  - RENAL FAILURE ACUTE [None]
